FAERS Safety Report 14322195 (Version 2)
Quarter: 2018Q2

REPORT INFORMATION
  Report Type: Spontaneous
  Country: DE (occurrence: DE)
  Receive Date: 20171225
  Receipt Date: 20180508
  Transmission Date: 20180711
  Serious: Yes (Death, Hospitalization, Other)
  Sender: FDA-Public Use
  Company Number: DE-AUROBINDO-AUR-APL-2017-46953

PATIENT
  Age: 78 Year
  Sex: Male

DRUGS (18)
  1. DRONABINOL. [Suspect]
     Active Substance: DRONABINOL
     Dosage: 15 MG, DAILY
     Route: 065
  2. QUETIAPINE. [Suspect]
     Active Substance: QUETIAPINE
     Indication: DEMENTIA WITH LEWY BODIES
     Dosage: ()
     Route: 065
     Dates: start: 2017
  3. QUETIAPINE. [Suspect]
     Active Substance: QUETIAPINE
     Dosage: ()
     Route: 065
     Dates: start: 2017
  4. DRONABINOL. [Suspect]
     Active Substance: DRONABINOL
     Dosage: ()
     Route: 065
  5. PAROXETINE. [Suspect]
     Active Substance: PAROXETINE
     Indication: DELIRIUM
     Dosage: 10 MG, UNK
     Route: 065
     Dates: start: 2017
  6. DEXTROMETHORPHAN HYDROBROMIDE. [Suspect]
     Active Substance: DEXTROMETHORPHAN HYDROBROMIDE
     Dosage: TWO DIVIDED DOSES ()
     Route: 065
     Dates: start: 2017
  7. LORAZEPAM. [Suspect]
     Active Substance: LORAZEPAM
     Indication: DELIRIUM
     Dosage: ()
     Route: 065
     Dates: start: 2016
  8. RIVASTIGMINE. [Concomitant]
     Active Substance: RIVASTIGMINE
     Indication: PRODUCT USED FOR UNKNOWN INDICATION
     Dosage: ()
     Route: 065
  9. QUETIAPINE. [Suspect]
     Active Substance: QUETIAPINE
     Indication: DELIRIUM
     Dosage: ()
     Route: 065
     Dates: start: 2016
  10. DRONABINOL. [Suspect]
     Active Substance: DRONABINOL
     Indication: DELIRIUM
     Dosage: 2.5 MG, DAILY
     Route: 065
  11. AMPICILLIN AND SULBACTAM [Suspect]
     Active Substance: AMPICILLIN SODIUM\SULBACTAM SODIUM
     Indication: PNEUMONIA
     Dosage: ()
     Route: 065
     Dates: start: 201601
  12. DEXTROMETHORPHAN HYDROBROMIDE. [Suspect]
     Active Substance: DEXTROMETHORPHAN HYDROBROMIDE
     Indication: DELIRIUM
     Dosage: 24 MG, UNK
     Route: 065
     Dates: start: 2017
  13. LORAZEPAM. [Suspect]
     Active Substance: LORAZEPAM
     Indication: DEMENTIA WITH LEWY BODIES
     Dosage: ()
     Route: 065
     Dates: start: 2016
  14. QUETIAPINE. [Suspect]
     Active Substance: QUETIAPINE
     Dosage: ()
     Route: 065
     Dates: start: 2016
  15. TIOTROPIUM [Suspect]
     Active Substance: TIOTROPIUM
     Indication: PNEUMONIA
     Dosage: ()
     Route: 065
     Dates: start: 201601
  16. QUETIAPINE. [Suspect]
     Active Substance: QUETIAPINE
     Dosage: 150 MG, DAILY
     Route: 065
     Dates: start: 2016
  17. QUETIAPINE. [Suspect]
     Active Substance: QUETIAPINE
     Dosage: 150 MG, DAILY
     Route: 065
     Dates: start: 2016
  18. FORMOTEROL FUMARATE [Suspect]
     Active Substance: FORMOTEROL FUMARATE
     Indication: PNEUMONIA
     Dosage: ()
     Route: 065
     Dates: start: 201601

REACTIONS (12)
  - Delirium [Recovering/Resolving]
  - Withdrawal syndrome [Recovering/Resolving]
  - Fatigue [Unknown]
  - Completed suicide [Fatal]
  - Hangover [Recovering/Resolving]
  - Paradoxical drug reaction [Recovering/Resolving]
  - Off label use [Unknown]
  - Sleep disorder [Recovering/Resolving]
  - Condition aggravated [Recovering/Resolving]
  - Aggression [Recovering/Resolving]
  - Paranoia [Unknown]
  - Rebound effect [Unknown]

NARRATIVE: CASE EVENT DATE: 2016
